FAERS Safety Report 18012554 (Version 9)
Quarter: 2021Q3

REPORT INFORMATION
  Report Type: Spontaneous
  Country: US (occurrence: US)
  Receive Date: 20200713
  Receipt Date: 20210830
  Transmission Date: 20211014
  Serious: Yes (Disabling, Other)
  Sender: FDA-Public Use
  Company Number: US-PFIZER INC-2020242015

PATIENT
  Age: 62 Year
  Sex: Female
  Weight: 102.06 kg

DRUGS (7)
  1. GENOTROPIN [Suspect]
     Active Substance: SOMATROPIN
     Dosage: 0.5 MG (4 DAYS A WEEK)
  2. GENOTROPIN [Suspect]
     Active Substance: SOMATROPIN
     Indication: EMPTY SELLA SYNDROME
     Dosage: UNK
  3. LIOTHYRONINE SODIUM (T3) [Concomitant]
     Active Substance: LIOTHYRONINE SODIUM
     Indication: EMPTY SELLA SYNDROME
     Dosage: UNK
  4. GENOTROPIN [Suspect]
     Active Substance: SOMATROPIN
     Dosage: 0.4 MG, ALTERNATE DAY (EVERY OTHER DAY)
  5. GENOTROPIN [Suspect]
     Active Substance: SOMATROPIN
     Dosage: 0.5 MG, ALTERNATE DAY (EVERY OTHER NIGHT)
  6. HYDROCORTISONE. [Concomitant]
     Active Substance: HYDROCORTISONE
     Indication: EMPTY SELLA SYNDROME
     Dosage: UNK, DAILY (IN THE MORNING AND AT NIGHT)
  7. LEVOTHYROXINE SODIUM. [Concomitant]
     Active Substance: LEVOTHYROXINE SODIUM
     Indication: EMPTY SELLA SYNDROME
     Dosage: UNK

REACTIONS (21)
  - Dizziness [Not Recovered/Not Resolved]
  - Disturbance in attention [Recovering/Resolving]
  - Drug level below therapeutic [Unknown]
  - Poor quality device used [Unknown]
  - Circumstance or information capable of leading to medication error [Unknown]
  - Off label use [Unknown]
  - Hypotension [Not Recovered/Not Resolved]
  - Product dose omission issue [Unknown]
  - Device issue [Unknown]
  - Malaise [Unknown]
  - Hypoglycaemia [Not Recovered/Not Resolved]
  - Feeling abnormal [Unknown]
  - Depression [Recovering/Resolving]
  - Product odour abnormal [Unknown]
  - Judgement impaired [Recovering/Resolving]
  - Mood swings [Recovering/Resolving]
  - Needle issue [Unknown]
  - Product prescribing issue [Unknown]
  - Impaired driving ability [Recovering/Resolving]
  - Tinnitus [Not Recovered/Not Resolved]
  - Withdrawal syndrome [Unknown]

NARRATIVE: CASE EVENT DATE: 20200629
